FAERS Safety Report 5033301-7 (Version None)
Quarter: 2006Q2

REPORT INFORMATION
  Report Type: 
  Country: None (occurrence: None)
  Receive Date: 20060511
  Receipt Date: 20060330
  Transmission Date: 20061013
  Serious: No
  Sender: FDA-Public Use
  Company Number: 200613223US

PATIENT
  Age: 62 Year
  Sex: Male

DRUGS (10)
  1. APIDRA [Suspect]
     Dates: start: 20060301
  2. LANTUS [Suspect]
     Dates: start: 20051201
  3. OPTICLIK [Suspect]
     Indication: DIABETES MELLITUS NON-INSULIN-DEPENDENT
  4. LASIX [Concomitant]
  5. COREG [Concomitant]
  6. TRICOR [Concomitant]
  7. ASPIRIN [Concomitant]
  8. NORVASC [Concomitant]
  9. POTASSIUM [Concomitant]
  10. DESLORATADINE [Concomitant]

REACTIONS (1)
  - PAIN IN EXTREMITY [None]
